FAERS Safety Report 16138420 (Version 5)
Quarter: 2020Q1

REPORT INFORMATION
  Report Type: Spontaneous
  Country: US (occurrence: US)
  Receive Date: 20190330
  Receipt Date: 20200205
  Transmission Date: 20200409
  Serious: Yes (Other)
  Sender: FDA-Public Use
  Company Number: US-UNITED THERAPEUTICS-UNT-2019-005554

PATIENT
  Age: 44 Year
  Sex: Female

DRUGS (4)
  1. REMODULIN [Suspect]
     Active Substance: TREPROSTINIL
     Indication: PULMONARY ARTERIAL HYPERTENSION
     Dosage: 0.0152 ?G/KG, CONTINUING
     Route: 058
     Dates: start: 20190319
  2. REMODULIN [Suspect]
     Active Substance: TREPROSTINIL
     Dosage: 0.029 ?G/KG, CONTINUING
     Route: 058
     Dates: start: 20190320
  3. REMODULIN [Suspect]
     Active Substance: TREPROSTINIL
     Dosage: 0.033 ?G/KG, CONTINUING
     Route: 058
  4. REMODULIN [Suspect]
     Active Substance: TREPROSTINIL
     Dosage: 0.0309 ?G/KG, CONTINUING
     Route: 058
     Dates: start: 20190320

REACTIONS (10)
  - Neuralgia [Unknown]
  - Headache [Unknown]
  - Nausea [Unknown]
  - Infusion site swelling [Unknown]
  - Myalgia [Unknown]
  - Lung disorder [Unknown]
  - Diarrhoea [Not Recovered/Not Resolved]
  - Infusion site pain [Unknown]
  - Infusion site thrombosis [Not Recovered/Not Resolved]
  - Infusion site erythema [Unknown]

NARRATIVE: CASE EVENT DATE: 201903
